FAERS Safety Report 5040620-7 (Version None)
Quarter: 2006Q2

REPORT INFORMATION
  Report Type: 
  Country: None (occurrence: None)
  Receive Date: 20060626
  Receipt Date: 20060626
  Transmission Date: 20061013
  Serious: Yes (Death, Hospitalization)
  Sender: FDA-Public Use
  Company Number: None

PATIENT
  Sex: Female
  Weight: 14.6 kg

DRUGS (19)
  1. CARBOPLATIN [Suspect]
     Dosage: 1040 MG
  2. CISPLATIN [Suspect]
  3. ETOPOSIDE [Suspect]
     Dosage: 840 MG
  4. MELPHALAN [Suspect]
     Dosage: 120 MG
  5. AMPHOTERICIN B [Concomitant]
  6. AZITHROMYCIN [Concomitant]
  7. BUMETANIDE [Concomitant]
  8. CYTOMEGALOVIRUS IMMUNE GLOBULIN [Concomitant]
  9. ENALAPRIL [Concomitant]
  10. FOSCARNET [Concomitant]
  11. FUROSEMIDE [Concomitant]
  12. GANCICLOVIR [Concomitant]
  13. GENTAMICIN [Concomitant]
  14. GENTAMICIN [Concomitant]
  15. IMMUNE GLOBULIN (HUMAN) [Concomitant]
  16. METOLAZONE [Concomitant]
  17. MICOFUNGIN [Concomitant]
  18. TOBRAMYCIN [Concomitant]
  19. VANCOMYCIN [Concomitant]

REACTIONS (11)
  - BACTERIAL SEPSIS [None]
  - COMPLICATIONS OF TRANSPLANT SURGERY [None]
  - CYTOMEGALOVIRUS INFECTION [None]
  - DRUG TOXICITY [None]
  - GLOMERULAR VASCULAR DISORDER [None]
  - HAEMODIALYSIS [None]
  - KIDNEY FIBROSIS [None]
  - LUNG DISORDER [None]
  - NEPHROSCLEROSIS [None]
  - RENAL FAILURE [None]
  - RESPIRATORY FAILURE [None]
